FAERS Safety Report 8365411-0 (Version None)
Quarter: 2012Q2

REPORT INFORMATION
  Report Type: 
  Country: None (occurrence: None)
  Receive Date: 20120516
  Receipt Date: 20120507
  Transmission Date: 20120825
  Serious: Yes (Death)
  Sender: FDA-Public Use
  Company Number: US-ROCHE-1033353

PATIENT
  Sex: Female

DRUGS (4)
  1. FEMARA [Concomitant]
  2. ZELBORAF [Suspect]
     Indication: METASTATIC MALIGNANT MELANOMA
     Dates: start: 20111114, end: 20120103
  3. PHENERGAN [Concomitant]
  4. ELIXIR OF UNKNOWN NAME [Concomitant]

REACTIONS (1)
  - MALIGNANT MELANOMA [None]
